FAERS Safety Report 24147154 (Version 2)
Quarter: 2024Q4

REPORT INFORMATION
  Report Type: Spontaneous
  Country: US (occurrence: US)
  Receive Date: 20240729
  Receipt Date: 20241011
  Transmission Date: 20250114
  Serious: Yes (Hospitalization)
  Sender: DOMPE FARMACEUTICI
  Company Number: US-FARMAPROD-202407-2661

PATIENT
  Age: 61 Year
  Sex: Male

DRUGS (16)
  1. OXERVATE [Suspect]
     Active Substance: CENEGERMIN-BKBJ
     Indication: Neurotrophic keratopathy
     Route: 047
     Dates: start: 20240610
  2. OXERVATE [Suspect]
     Active Substance: CENEGERMIN-BKBJ
  3. OXERVATE [Suspect]
     Active Substance: CENEGERMIN-BKBJ
  4. PROGRAF [Concomitant]
     Active Substance: TACROLIMUS
  5. PROGRAF [Concomitant]
     Active Substance: TACROLIMUS
  6. CELLCEPT [Concomitant]
     Active Substance: MYCOPHENOLATE MOFETIL
  7. GABAPENTIN [Concomitant]
     Active Substance: GABAPENTIN
  8. POTASSIUM CHLORIDE [Concomitant]
     Active Substance: POTASSIUM CHLORIDE
  9. FUROSEMIDE [Concomitant]
     Active Substance: FUROSEMIDE
  10. METOPROLOL TARTRATE [Concomitant]
     Active Substance: METOPROLOL TARTRATE
  11. AMLODIPINE BESYLATE [Concomitant]
     Active Substance: AMLODIPINE BESYLATE
  12. DIFLUPREDNATE [Concomitant]
     Active Substance: DIFLUPREDNATE
  13. MOXIFLOXACIN [Concomitant]
     Active Substance: MOXIFLOXACIN
  14. RESTASIS [Concomitant]
     Active Substance: CYCLOSPORINE
  15. TACROLIMUS [Concomitant]
     Active Substance: TACROLIMUS
  16. MYCOPHENOLATE MOFETIL [Concomitant]
     Active Substance: MYCOPHENOLATE MOFETIL

REACTIONS (4)
  - Loss of consciousness [Unknown]
  - Illness [Not Recovered/Not Resolved]
  - Dehydration [Unknown]
  - Product storage error [Unknown]

NARRATIVE: CASE EVENT DATE: 20240714
